FAERS Safety Report 19898755 (Version 1)
Quarter: 2021Q3

REPORT INFORMATION
  Report Type: Spontaneous
  Country: CA (occurrence: CA)
  Receive Date: 20210930
  Receipt Date: 20210930
  Transmission Date: 20211014
  Serious: Yes (Other)
  Sender: FDA-Public Use
  Company Number: CA-SA-2021SA319329

PATIENT
  Age: 60 Year
  Sex: Male

DRUGS (13)
  1. UMECLIDINIUM BROMIDE [Suspect]
     Active Substance: UMECLIDINIUM BROMIDE
  2. NUCALA [Suspect]
     Active Substance: MEPOLIZUMAB
     Indication: ASTHMA
  3. RANITIDINE. [Suspect]
     Active Substance: RANITIDINE
     Route: 048
  4. BUDESONIDE. [Suspect]
     Active Substance: BUDESONIDE
     Dosage: UNK
  5. ALLOPURINOL. [Suspect]
     Active Substance: ALLOPURINOL
     Dosage: UNK, QD
  6. THEOPHYLLINE [Suspect]
     Active Substance: THEOPHYLLINE ANHYDROUS
     Dosage: 400 MG, QD
  7. IPRATROPIUM;SALBUTAMOL [Suspect]
     Active Substance: ALBUTEROL\IPRATROPIUM
     Dosage: 1.0 MG, Q4H
  8. NUCALA [Suspect]
     Active Substance: MEPOLIZUMAB
     Indication: ASTHMA
     Dosage: 100 MG, QM
     Route: 042
  9. PREDNISONE. [Suspect]
     Active Substance: PREDNISONE
  10. SALBUTAMOL [Suspect]
     Active Substance: ALBUTEROL
     Indication: ASTHMA
     Dosage: UNK UNK, Q4H
  11. MONTELUKAST SODIUM. [Suspect]
     Active Substance: MONTELUKAST SODIUM
     Dosage: 10 MG, QD
  12. CICLESONIDE [Suspect]
     Active Substance: CICLESONIDE
  13. FLUTICASONE FUROATE [Suspect]
     Active Substance: FLUTICASONE FUROATE
     Indication: ASTHMA
     Dosage: UNK UNK, QD

REACTIONS (11)
  - Dermatitis allergic [Unknown]
  - Eczema [Unknown]
  - Ocular hyperaemia [Unknown]
  - Therapeutic product effect incomplete [Unknown]
  - Glaucoma [Unknown]
  - Ocular discomfort [Unknown]
  - Adverse drug reaction [Unknown]
  - Wheezing [Unknown]
  - Seasonal allergy [Unknown]
  - Asthma [Unknown]
  - Eye pruritus [Unknown]
